FAERS Safety Report 24749587 (Version 2)
Quarter: 2024Q4

REPORT INFORMATION
  Report Type: Spontaneous
  Country: FR (occurrence: FR)
  Receive Date: 20241218
  Receipt Date: 20241231
  Transmission Date: 20250115
  Serious: Yes (Other)
  Sender: MYLAN
  Company Number: None

PATIENT
  Age: 71 Year
  Sex: Male
  Weight: 78 kg

DRUGS (15)
  1. CEFAZOLIN SODIUM [Suspect]
     Active Substance: CEFAZOLIN SODIUM
     Indication: Antibiotic prophylaxis
     Dosage: 2 GRAM, TOTAL
     Route: 042
     Dates: start: 20241030, end: 20241030
  2. METHYLPREDNISOLONE [Suspect]
     Active Substance: METHYLPREDNISOLONE
     Indication: General anaesthesia
     Dosage: 120 MILLIGRAM, TOTAL
     Route: 042
     Dates: start: 20241030, end: 20241030
  3. SUFENTANIL CITRATE [Suspect]
     Active Substance: SUFENTANIL CITRATE
     Indication: General anaesthesia
     Dosage: 35 MICROGRAM, TOTAL
     Route: 042
     Dates: start: 20241030, end: 20241030
  4. CISATRACURIUM [Suspect]
     Active Substance: CISATRACURIUM
     Indication: General anaesthesia
     Dosage: 10 MILLIGRAM, TOTAL
     Route: 042
     Dates: start: 20241030, end: 20241030
  5. TRAMADOL [Suspect]
     Active Substance: TRAMADOL
     Indication: Analgesic intervention supportive therapy
     Dosage: 100 MILLIGRAM, TOTAL
     Route: 065
     Dates: start: 20241030, end: 20241030
  6. NOREPINEPHRINE BITARTRATE [Suspect]
     Active Substance: NOREPINEPHRINE BITARTRATE
     Indication: Analgesic intervention supportive therapy
     Dosage: 100 MILLIGRAM, TOTAL
     Route: 042
     Dates: start: 20241030, end: 20241030
  7. TIROFIBAN HYDROCHLORIDE [Suspect]
     Active Substance: TIROFIBAN HYDROCHLORIDE
     Indication: Product used for unknown indication
     Dosage: UNK
     Route: 042
     Dates: start: 20241030, end: 20241030
  8. PROPOFOL LIPURO [Suspect]
     Active Substance: PROPOFOL
     Indication: General anaesthesia
     Dosage: 200 MILLIGRAM, TOTAL
     Route: 042
     Dates: start: 20241030, end: 20241030
  9. ATROPINE SULFATE [Suspect]
     Active Substance: ATROPINE SULFATE
     Indication: General anaesthesia
     Dosage: 600 MICROGRAM, TOTAL
     Route: 042
     Dates: start: 20241030, end: 20241030
  10. HEPARIN SODIUM [Suspect]
     Active Substance: HEPARIN SODIUM
     Indication: Product used for unknown indication
     Dosage: 4000 INTERNATIONAL UNIT, TOTAL
     Route: 042
     Dates: start: 20241030, end: 20241030
  11. ASPIRIN [Suspect]
     Active Substance: ASPIRIN
     Indication: Product used for unknown indication
     Dosage: 250 MILLIGRAM, TOTAL (ACETYLSALICYLIC ACID PANPHARMA)
     Route: 042
     Dates: start: 20241030, end: 20241030
  12. ACETAMINOPHEN [Suspect]
     Active Substance: ACETAMINOPHEN
     Indication: Analgesic intervention supportive therapy
     Dosage: 1 GRAM, TOTAL
     Route: 042
     Dates: start: 20241030, end: 20241030
  13. EPHEDRINE [Suspect]
     Active Substance: EPHEDRINE
     Indication: Product used for unknown indication
     Dosage: UNK
     Route: 042
     Dates: start: 20241030, end: 20241030
  14. IOMERON [Suspect]
     Active Substance: IOMEPROL
     Indication: Scan with contrast
     Dosage: UNK
     Route: 042
     Dates: start: 20241030, end: 20241030
  15. TRAMADOL HYDROCHLORIDE [Suspect]
     Active Substance: TRAMADOL HYDROCHLORIDE
     Indication: Analgesic intervention supportive therapy
     Dosage: 100 MILLIGRAM, TOTAL
     Route: 042
     Dates: start: 20241030, end: 20241030

REACTIONS (1)
  - Erythema [Recovered/Resolved]

NARRATIVE: CASE EVENT DATE: 20241030
